FAERS Safety Report 18558671 (Version 1)
Quarter: 2020Q4

REPORT INFORMATION
  Report Type: Spontaneous
  Country: US (occurrence: US)
  Receive Date: 20201130
  Receipt Date: 20201130
  Transmission Date: 20210114
  Serious: No
  Sender: FDA-Public Use
  Company Number: US-BAYER-2020-254598

PATIENT

DRUGS (1)
  1. MIRALAX [Suspect]
     Active Substance: POLYETHYLENE GLYCOL 3350
     Indication: PREOPERATIVE CARE
     Dosage: 8.3 OZ IN 64 OZ OF  WATER
     Route: 065

REACTIONS (3)
  - Product use in unapproved indication [None]
  - Skin discolouration [Not Recovered/Not Resolved]
  - Off label use [Unknown]
